FAERS Safety Report 6504758-7 (Version None)
Quarter: 2009Q4

REPORT INFORMATION
  Report Type: 
  Country: None (occurrence: None)
  Receive Date: 20091215
  Receipt Date: 20091130
  Transmission Date: 20100525
  Serious: Yes (Other)
  Sender: FDA-Public Use
  Company Number: 2009SE004893

PATIENT
  Age: 39 Year
  Sex: Female
  Weight: 77 kg

DRUGS (9)
  1. ALOXI [Suspect]
     Indication: PROPHYLAXIS OF NAUSEA AND VOMITING
     Dosage: 0.25 MG, SINGLE, IV BOLUS
     Route: 040
     Dates: start: 20091021, end: 20091021
  2. ALOXI [Suspect]
     Indication: PROPHYLAXIS OF NAUSEA AND VOMITING
     Dosage: 0.25 MG, SINGLE, IV BOLUS
     Route: 040
     Dates: start: 20091104, end: 20091104
  3. ALOXI [Suspect]
     Indication: PROPHYLAXIS OF NAUSEA AND VOMITING
     Dosage: 0.25 MG, SINGLE, IV BOLUS
     Route: 040
     Dates: start: 20091119, end: 20091119
  4. BETAPRED (BETAMETHASONE SODIUM PHOSPHATE) INJECTION [Concomitant]
  5. EMEND (ARPREPITANT) [Concomitant]
  6. ELOXATIN [Concomitant]
  7. FLUOROURACIL [Concomitant]
  8. LEUKOVORIN (CALCIUM FOLINATE) [Concomitant]
  9. CORTISONE (CORTISONE) [Concomitant]

REACTIONS (1)
  - GASTROENTERITIS VIRAL [None]
